FAERS Safety Report 6307363-0 (Version None)
Quarter: 2009Q3

REPORT INFORMATION
  Report Type: 
  Country: None (occurrence: None)
  Receive Date: 20090813
  Receipt Date: 20090803
  Transmission Date: 20100115
  Serious: Yes (Other)
  Sender: FDA-Public Use
  Company Number: US-JNJFOC-20090703547

PATIENT
  Sex: Male
  Weight: 69.85 kg

DRUGS (4)
  1. PREZISTA [Suspect]
     Indication: HIV INFECTION
     Route: 048
  2. INTELENCE [Suspect]
     Indication: DRUG USE FOR UNKNOWN INDICATION
  3. NORVIR [Concomitant]
  4. TRUVADA [Concomitant]

REACTIONS (2)
  - NEPHROLITHIASIS [None]
  - URTICARIA [None]
